FAERS Safety Report 23488955 (Version 2)
Quarter: 2024Q1

REPORT INFORMATION
  Report Type: Spontaneous
  Country: US (occurrence: None)
  Receive Date: 20240206
  Receipt Date: 20240213
  Transmission Date: 20240409
  Serious: Yes (Hospitalization, Other)
  Sender: FDA-Public Use
  Company Number: 2024A026805

PATIENT
  Age: 28848 Day
  Sex: Female

DRUGS (1)
  1. SYMBICORT [Suspect]
     Active Substance: BUDESONIDE\FORMOTEROL FUMARATE DIHYDRATE
     Dosage: 160/4.5MCG, 120 INHALATIONS, 2 PUFFS TWO TIMES A DAY
     Route: 055

REACTIONS (3)
  - Deafness [Unknown]
  - COVID-19 [Unknown]
  - Device malfunction [Unknown]

NARRATIVE: CASE EVENT DATE: 20201201
